FAERS Safety Report 11109765 (Version 1)
Quarter: 2015Q2

REPORT INFORMATION
  Report Type: Spontaneous
  Country: US (occurrence: None)
  Receive Date: 20150512
  Receipt Date: 20150512
  Transmission Date: 20150821
  Serious: No
  Sender: FDA-Public Use
  Company Number: None

PATIENT
  Age: 72 Year
  Sex: Female

DRUGS (1)
  1. SODIUM CHLORIDE INHALATION SOLUT CAREFUSION/BD [Suspect]
     Active Substance: SODIUM CHLORIDE
     Indication: LABORATORY TEST
     Dates: start: 20150301, end: 20150427

REACTIONS (2)
  - Burkholderia test positive [None]
  - Product contamination microbial [None]

NARRATIVE: CASE EVENT DATE: 20150427
